FAERS Safety Report 9314470 (Version 1)
Quarter: 2013Q2

REPORT INFORMATION
  Report Type: Spontaneous
  Country: GB (occurrence: GB)
  Receive Date: 20130529
  Receipt Date: 20130529
  Transmission Date: 20140414
  Serious: Yes (Other)
  Sender: FDA-Public Use
  Company Number: GB-PFIZER INC-GB8889414JAN2002

PATIENT
  Sex: Male

DRUGS (1)
  1. IBUPROFEN [Suspect]
     Dosage: 200 MG, 1X/DAY
     Route: 048

REACTIONS (4)
  - Blister [Recovered/Resolved]
  - Ageusia [Recovered/Resolved]
  - Tongue oedema [Recovered/Resolved]
  - Mouth ulceration [Recovered/Resolved]
